FAERS Safety Report 5856740-0 (Version None)
Quarter: 2008Q3

REPORT INFORMATION
  Report Type: 
  Country: None (occurrence: None)
  Receive Date: 20080822
  Receipt Date: 20080822
  Transmission Date: 20090109
  Serious: Yes (Other)
  Sender: FDA-Public Use
  Company Number: None

PATIENT
  Age: 73 Year
  Sex: Female
  Weight: 77.1115 kg

DRUGS (1)
  1. PERIDEX [Suspect]
     Indication: PERIODONTAL DISEASE
     Dosage: APPLIES TOPICALLY TO TWO TEETH ONE TIME PO
     Route: 048
     Dates: start: 20080805, end: 20080805

REACTIONS (1)
  - BLOOD PRESSURE INCREASED [None]
